FAERS Safety Report 10100940 (Version 6)
Quarter: 2015Q2

REPORT INFORMATION
  Report Type: Report from Study
  Country: JP (occurrence: JP)
  Receive Date: 20140424
  Receipt Date: 20150417
  Transmission Date: 20150821
  Serious: Yes (Hospitalization, Disabling, Other)
  Sender: FDA-Public Use
  Company Number: JP-AMGEN-JPNSP2014029025

PATIENT
  Age: 77 Year
  Sex: Male
  Weight: 50 kg

DRUGS (24)
  1. EPADEL                             /01682401/ [Concomitant]
     Active Substance: ETHYL ICOSAPENTATE\ICOSAPENT
     Dosage: 1800 MG, QD
     Route: 048
     Dates: start: 20130907
  2. SUMIFERON                          /05982601/ [Concomitant]
     Dosage: UNK
     Route: 065
     Dates: start: 20121015, end: 20121128
  3. CALCIUM LACTATE [Concomitant]
     Active Substance: CALCIUM LACTATE
     Dosage: 3 G, QD
     Route: 048
     Dates: start: 20131011, end: 20140124
  4. SENNOSIDE                          /00571901/ [Concomitant]
     Active Substance: SENNOSIDES A AND B
     Dosage: 24 MG, QD
     Route: 048
     Dates: start: 20130903, end: 20130907
  5. CEFOTIAM HYDROCHLORIDE [Concomitant]
     Active Substance: CEFOTIAM HYDROCHLORIDE
     Dosage: 1 G, QD
     Route: 042
     Dates: start: 20130919, end: 20130921
  6. DENOSUMAB [Suspect]
     Active Substance: DENOSUMAB
     Indication: METASTASES TO BONE
     Dosage: 120 MG, UNK
     Route: 058
     Dates: start: 20131011, end: 20131127
  7. ALFAROL [Concomitant]
     Active Substance: ALFACALCIDOL
     Dosage: 0.5 MUG, QD
     Route: 048
     Dates: start: 20131011, end: 20140124
  8. SUTENT [Concomitant]
     Active Substance: SUNITINIB MALATE
     Dosage: UNK
     Route: 065
     Dates: start: 20130902, end: 20131024
  9. FERROMIA [Concomitant]
     Active Substance: FERROUS CITRATE
     Dosage: 100 MG, QD
     Route: 048
     Dates: start: 20130910
  10. MAGNESIUM OXIDE. [Concomitant]
     Active Substance: MAGNESIUM OXIDE
     Dosage: 3 G, QD
     Route: 048
     Dates: start: 20130910
  11. LOXONIN [Concomitant]
     Active Substance: LOXOPROFEN SODIUM
     Dosage: 180 MG, QD
     Route: 048
     Dates: start: 20121017
  12. PLAVIX [Concomitant]
     Active Substance: CLOPIDOGREL BISULFATE
     Dosage: 75 MG, QD
     Route: 048
     Dates: start: 20130910
  13. METHYCOBAL [Concomitant]
     Active Substance: METHYLCOBALAMIN
     Dosage: 1500 MUG, QD
     Route: 048
     Dates: start: 20130910
  14. LOCOID [Concomitant]
     Active Substance: HYDROCORTISONE BUTYRATE
     Dosage: PROPER DOSE, UNK
     Route: 050
     Dates: start: 20130917, end: 20131120
  15. LEVOTHYROXINE SODIUM. [Concomitant]
     Active Substance: LEVOTHYROXINE SODIUM
     Dosage: 50 MUG, QD
     Route: 048
     Dates: start: 20130910
  16. TAKEPRON [Concomitant]
     Active Substance: LANSOPRAZOLE
     Dosage: 15 MG, QD
     Route: 048
     Dates: start: 20130910
  17. AMLODIN [Concomitant]
     Active Substance: AMLODIPINE BESYLATE
     Dosage: 5 MG, QD
     Route: 048
     Dates: start: 20130910
  18. VONFENAC [Concomitant]
     Dosage: 25 MG, AS NECESSARY
     Route: 050
     Dates: start: 20131227, end: 20140207
  19. LYRICA [Concomitant]
     Active Substance: PREGABALIN
     Dosage: 175 MG, QD
     Route: 048
     Dates: start: 20131216
  20. NICOTINAMIDE [Concomitant]
     Active Substance: NIACINAMIDE
     Dosage: 6 DF, QD
     Route: 048
     Dates: start: 20120924
  21. AFINITOR [Concomitant]
     Active Substance: EVEROLIMUS
     Indication: RENAL CANCER
     Dosage: 180 MG, UNK
     Route: 065
     Dates: start: 20131126, end: 20140123
  22. HIRUDOID                           /00723701/ [Concomitant]
     Dosage: PROPER DOSE, UNK
     Route: 050
     Dates: start: 20130915, end: 20131120
  23. UREPEARL [Concomitant]
     Active Substance: UREA
     Dosage: PROPER DOSE, UNK
     Route: 050
     Dates: start: 20130828, end: 20131120
  24. ADONA                              /00056903/ [Concomitant]
     Active Substance: CARBAZOCHROME SODIUM SULFONATE
     Dosage: 90 MG, QD
     Route: 048
     Dates: start: 20140225, end: 20140307

REACTIONS (5)
  - Osteonecrosis of jaw [Recovering/Resolving]
  - Platelet count decreased [Recovered/Resolved]
  - Toothache [Recovered/Resolved]
  - Osteitis [Recovering/Resolving]
  - Insomnia [Recovering/Resolving]

NARRATIVE: CASE EVENT DATE: 20131025
